FAERS Safety Report 7207875-1 (Version None)
Quarter: 2010Q4

REPORT INFORMATION
  Report Type: 
  Country: None (occurrence: None)
  Receive Date: 20101221
  Receipt Date: 20101216
  Transmission Date: 20110411
  Serious: Yes (Hospitalization)
  Sender: FDA-Public Use
  Company Number: 2010SP057319

PATIENT
  Age: 59 Year
  Sex: Male
  Weight: 55 kg

DRUGS (5)
  1. TEMODAL [Suspect]
     Indication: GLIOBLASTOMA MULTIFORME
     Dosage: 120 MG; ; PO
     Route: 048
     Dates: start: 20070406, end: 20070424
  2. SELENICA R (VALPROATE SODIUM) [Suspect]
     Indication: EPILEPSY
     Dosage: 1200 MG; ; PO
     Route: 048
     Dates: start: 20070314, end: 20070424
  3. PHENYTOIN [Suspect]
     Indication: EPILEPSY
     Dosage: 300 MG; ; PO
     Route: 048
     Dates: start: 20070314, end: 20070424
  4. TAKEPRON OD (LANSOPRAZOLE) [Suspect]
     Indication: ULCER
     Dosage: 30 MG; ; PO
     Route: 048
     Dates: start: 20070320, end: 20070424
  5. INTERFERON BETA NOS [Concomitant]

REACTIONS (1)
  - HEPATIC FUNCTION ABNORMAL [None]
